FAERS Safety Report 10187598 (Version 1)
Quarter: 2014Q2

REPORT INFORMATION
  Report Type: Spontaneous
  Country: US (occurrence: US)
  Receive Date: 20140522
  Receipt Date: 20140522
  Transmission Date: 20141212
  Serious: No
  Sender: FDA-Public Use
  Company Number: US-SANOFI-AVENTIS-2013SA085000

PATIENT
  Age: 67 Year
  Sex: Male
  Weight: 100 kg

DRUGS (7)
  1. LANTUS SOLOSTAR [Suspect]
     Indication: TYPE 2 DIABETES MELLITUS
     Dosage: TAKEN FROM A YEAR OR 2 AGO DOSE:34 UNIT(S)
     Route: 051
     Dates: start: 2008
  2. SOLOSTAR [Concomitant]
     Indication: TYPE 2 DIABETES MELLITUS
     Dosage: TAKEN FROM A YEAR OR 2 AGO
  3. METOPROLOL [Concomitant]
     Route: 065
     Dates: start: 2010
  4. METFORMIN [Concomitant]
     Route: 065
     Dates: start: 1995
  5. LISINOPRIL [Concomitant]
     Route: 065
     Dates: start: 2009
  6. LIPITOR [Concomitant]
     Route: 065
     Dates: start: 1996
  7. PLAVIX [Concomitant]
     Route: 065
     Dates: start: 2013

REACTIONS (2)
  - Weight decreased [Unknown]
  - Blood glucose decreased [Unknown]
